FAERS Safety Report 22147635 (Version 1)
Quarter: 2023Q1

REPORT INFORMATION
  Report Type: Spontaneous
  Country: US (occurrence: None)
  Receive Date: 20230327
  Receipt Date: 20230327
  Transmission Date: 20230418
  Serious: No
  Sender: FDA-Public Use
  Company Number: None

PATIENT
  Sex: Female

DRUGS (1)
  1. SUNITINIB [Suspect]
     Active Substance: SUNITINIB
     Dosage: FREQUENCY : DAILY;?
     Route: 048
     Dates: start: 202211

REACTIONS (7)
  - Fluid retention [None]
  - Palmar-plantar erythrodysaesthesia syndrome [None]
  - Rash macular [None]
  - Melanocytic naevus [None]
  - Myocardial infarction [None]
  - Chest discomfort [None]
  - Food allergy [None]
